FAERS Safety Report 16639538 (Version 1)
Quarter: 2019Q3

REPORT INFORMATION
  Report Type: Report from Study
  Country: None (occurrence: US)
  Receive Date: 20190726
  Receipt Date: 20190726
  Transmission Date: 20191004
  Serious: Yes (Hospitalization)
  Sender: FDA-Public Use
  Company Number: US-ABBVIE-19K-163-2858459-00

PATIENT
  Age: 25 Year
  Sex: Female
  Weight: 58.11 kg

DRUGS (1)
  1. HUMIRA [Suspect]
     Active Substance: ADALIMUMAB
     Indication: COLITIS ULCERATIVE
     Route: 058
     Dates: start: 20190221, end: 20190717

REACTIONS (7)
  - Drug ineffective [Recovering/Resolving]
  - Vomiting [Recovering/Resolving]
  - Colitis [Recovering/Resolving]
  - Vomiting [Recovered/Resolved]
  - Dehydration [Recovering/Resolving]
  - Dehydration [Recovered/Resolved]
  - Colitis ulcerative [Unknown]

NARRATIVE: CASE EVENT DATE: 2019
